FAERS Safety Report 11349302 (Version 1)
Quarter: 2015Q3

REPORT INFORMATION
  Report Type: Spontaneous
  Country: AU (occurrence: None)
  Receive Date: 20150805
  Receipt Date: 20150805
  Transmission Date: 20151125
  Serious: Yes (Hospitalization, Other)
  Sender: FDA-Public Use
  Company Number: UCM201507-000538

PATIENT
  Age: 51 Year
  Sex: Female
  Weight: 66 kg

DRUGS (3)
  1. CLONIDINE HCL [Suspect]
     Active Substance: CLONIDINE HYDROCHLORIDE
     Dosage: 18 MG (1000) MCG/ML, SUBCUTANEOUS
     Route: 058
  2. MORPHINE [Concomitant]
     Active Substance: MORPHINE
  3. MIDAZOLAM [Concomitant]
     Active Substance: MIDAZOLAM\MIDAZOLAM HYDROCHLORIDE
     Indication: SPINAL ANAESTHESIA

REACTIONS (8)
  - Hypotension [None]
  - Overdose [None]
  - Pulmonary embolism [None]
  - Loss of consciousness [None]
  - Bradycardia [None]
  - Hypertensive crisis [None]
  - Acute myocardial infarction [None]
  - Confusional state [None]
